FAERS Safety Report 15452910 (Version 3)
Quarter: 2020Q2

REPORT INFORMATION
  Report Type: Spontaneous
  Country: US (occurrence: US)
  Receive Date: 20181001
  Receipt Date: 20200629
  Transmission Date: 20200713
  Serious: No
  Sender: FDA-Public Use
  Company Number: US-PFIZER INC-2018395943

PATIENT
  Age: 53 Year

DRUGS (1)
  1. PREMARIN [Suspect]
     Active Substance: ESTROGENS, CONJUGATED
     Dosage: 6.25 MG, 1X/DAY (QD)

REACTIONS (2)
  - Off label use [Unknown]
  - Condition aggravated [Unknown]
